FAERS Safety Report 15836429 (Version 1)
Quarter: 2019Q1

REPORT INFORMATION
  Report Type: Spontaneous
  Country: DE (occurrence: DE)
  Receive Date: 20190117
  Receipt Date: 20190117
  Transmission Date: 20190417
  Serious: Yes (Other)
  Sender: FDA-Public Use
  Company Number: DE-ROCHE-2245872

PATIENT
  Age: 45 Year
  Sex: Male
  Weight: 65.5 kg

DRUGS (2)
  1. SANDIMMUN OPTORAL [Suspect]
     Active Substance: CYCLOSPORINE
     Indication: RENAL TRANSPLANT
     Dosage: 200 G BID
     Route: 048
     Dates: start: 20020922, end: 20020924
  2. CELLCEPT [Suspect]
     Active Substance: MYCOPHENOLATE MOFETIL\MYCOPHENOLATE MOFETIL HYDROCHLORIDE
     Indication: RENAL TRANSPLANT
     Dosage: 1 G BID
     Route: 048
     Dates: start: 20020922, end: 20020924

REACTIONS (3)
  - Lipase increased [Recovered/Resolved]
  - Amylase increased [Recovered/Resolved]
  - Submaxillary gland enlargement [Recovered/Resolved]

NARRATIVE: CASE EVENT DATE: 20020926
